FAERS Safety Report 25166341 (Version 1)
Quarter: 2025Q2

REPORT INFORMATION
  Report Type: Report from Study
  Country: US (occurrence: US)
  Receive Date: 20250407
  Receipt Date: 20250407
  Transmission Date: 20250716
  Serious: Yes (Other)
  Sender: ABBVIE
  Company Number: US-ABBVIE-6207687

PATIENT
  Sex: Female

DRUGS (1)
  1. HUMIRA [Suspect]
     Active Substance: ADALIMUMAB
     Indication: Uveitis
     Route: 058

REACTIONS (6)
  - Pulmonary sarcoidosis [Not Recovered/Not Resolved]
  - Sarcoidosis [Not Recovered/Not Resolved]
  - Diabetes mellitus [Unknown]
  - Madarosis [Not Recovered/Not Resolved]
  - Cutaneous sarcoidosis [Not Recovered/Not Resolved]
  - Muscular sarcoidosis [Not Recovered/Not Resolved]
